FAERS Safety Report 13374441 (Version 2)
Quarter: 2017Q1

REPORT INFORMATION
  Report Type: Spontaneous
  Country: IE (occurrence: IE)
  Receive Date: 20170327
  Receipt Date: 20170330
  Transmission Date: 20170429
  Serious: Yes (Disabling)
  Sender: FDA-Public Use
  Company Number: IE-PFIZER INC-2017126876

PATIENT
  Age: 43 Year
  Sex: Female
  Weight: 68.1 kg

DRUGS (2)
  1. NEURONTIN [Suspect]
     Active Substance: GABAPENTIN
     Indication: NEURALGIA
     Dosage: 900 MG
     Route: 048
     Dates: start: 20120303
  2. TOVIAZ [Concomitant]
     Active Substance: FESOTERODINE FUMARATE
     Indication: NEUROGENIC BLADDER
     Dosage: 4 MG
     Dates: start: 20130303

REACTIONS (3)
  - Fatigue [Not Recovered/Not Resolved]
  - Product use issue [Not Recovered/Not Resolved]
  - Cognitive disorder [Not Recovered/Not Resolved]

NARRATIVE: CASE EVENT DATE: 20120303
